APPROVED DRUG PRODUCT: AMOXICILLIN AND CLAVULANATE POTASSIUM
Active Ingredient: AMOXICILLIN; CLAVULANATE POTASSIUM
Strength: 875MG;EQ 125MG BASE
Dosage Form/Route: TABLET;ORAL
Application: A065317 | Product #003
Applicant: APOTEX INC
Approved: Oct 20, 2008 | RLD: No | RS: No | Type: DISCN